FAERS Safety Report 10696918 (Version 2)
Quarter: 2015Q1

REPORT INFORMATION
  Report Type: Spontaneous
  Country: ES (occurrence: ES)
  Receive Date: 20150108
  Receipt Date: 20150115
  Transmission Date: 20150721
  Serious: No
  Sender: FDA-Public Use
  Company Number: ES-AMGEN-ESPSP2014102873

PATIENT
  Age: 39 Year
  Sex: Female

DRUGS (3)
  1. NEUPOGEN [Suspect]
     Active Substance: FILGRASTIM
     Indication: PROPHYLAXIS
     Dosage: 30MU/06ML, EVERY 24 HOURS FOR 5 DAYS
     Route: 058
     Dates: start: 20141227
  2. ADRIAMYCIN [Concomitant]
     Active Substance: DOXORUBICIN HYDROCHLORIDE
     Indication: INVASIVE DUCTAL BREAST CARCINOMA
     Dosage: UNK
  3. CYCLOPHOSPHAMIDE. [Concomitant]
     Active Substance: CYCLOPHOSPHAMIDE
     Indication: INVASIVE DUCTAL BREAST CARCINOMA
     Dosage: UNK

REACTIONS (6)
  - Vomiting [Recovered/Resolved]
  - Hot flush [Recovered/Resolved]
  - Chills [Unknown]
  - Diarrhoea [Recovered/Resolved]
  - Nasopharyngitis [Unknown]
  - Abdominal pain upper [Recovered/Resolved]

NARRATIVE: CASE EVENT DATE: 20141227
